FAERS Safety Report 5006717-2 (Version None)
Quarter: 2006Q2

REPORT INFORMATION
  Report Type: 
  Country: None (occurrence: None)
  Receive Date: 20060519
  Receipt Date: 20060425
  Transmission Date: 20061013
  Serious: Yes (Life-Threatening)
  Sender: FDA-Public Use
  Company Number: JP-MERCK-0604USA04274

PATIENT
  Age: 23 Year
  Sex: Male
  Weight: 52 kg

DRUGS (6)
  1. COZAAR [Suspect]
     Indication: BLOOD PRESSURE INCREASED
     Route: 048
     Dates: start: 20050101
  2. COZAAR [Suspect]
     Route: 048
     Dates: start: 20060330, end: 20060425
  3. LASIX [Suspect]
     Indication: URINE OUTPUT DECREASED
     Route: 048
     Dates: start: 20060403, end: 20060425
  4. VANCOMYCIN [Suspect]
     Indication: INFECTION
     Route: 041
     Dates: start: 20060403, end: 20060425
  5. CALTAN [Concomitant]
     Indication: BLOOD PHOSPHORUS INCREASED
     Route: 048
     Dates: start: 20060403, end: 20060425
  6. ROCALTROL [Concomitant]
     Indication: BLOOD CALCIUM INCREASED
     Route: 048
     Dates: start: 20060403, end: 20060425

REACTIONS (5)
  - CHEST PAIN [None]
  - GENERAL PHYSICAL CONDITION ABNORMAL [None]
  - NASOPHARYNGITIS [None]
  - PANCYTOPENIA [None]
  - PYREXIA [None]
